FAERS Safety Report 23154988 (Version 2)
Quarter: 2024Q1

REPORT INFORMATION
  Report Type: Spontaneous
  Country: RU (occurrence: None)
  Receive Date: 20231107
  Receipt Date: 20240110
  Transmission Date: 20240409
  Serious: No
  Sender: FDA-Public Use
  Company Number: 2023A248967

PATIENT
  Age: 30 Year
  Sex: Female
  Weight: 74 kg

DRUGS (4)
  1. PULMICORT TURBUHALER [Suspect]
     Active Substance: BUDESONIDE
     Indication: Bronchitis
     Dosage: HALF OF UNKNOWN DOSE NEBULA 2 TIMES A DAY
     Route: 055
     Dates: start: 20231013, end: 20231030
  2. HYALURONIC ACID [Concomitant]
     Active Substance: HYALURONIC ACID
  3. INGASALIN [Concomitant]
  4. SUPRAX [Concomitant]
     Active Substance: CEFIXIME

REACTIONS (2)
  - Exposure during pregnancy [Unknown]
  - Off label use [Unknown]
